FAERS Safety Report 5430606-2 (Version None)
Quarter: 2007Q3

REPORT INFORMATION
  Report Type: 
  Country: None (occurrence: None)
  Receive Date: 20070828
  Receipt Date: 20070810
  Transmission Date: 20080115
  Serious: Yes (Other)
  Sender: FDA-Public Use
  Company Number: ENC200700142

PATIENT
  Age: 73 Year
  Sex: Male

DRUGS (7)
  1. ARGATROBAN [Suspect]
     Indication: HEPARIN-INDUCED THROMBOCYTOPENIA
     Dosage: INTRAVENOUS
     Route: 042
  2. VASOLAN /00014302/ (VERAPAMIL HYDROCHLORIDE) [Concomitant]
  3. RYTHMODAN /00271801/ (DISOPYRAMIDE) [Concomitant]
  4. CIBENOL (CIBENZOLINE SUCCINATE) [Concomitant]
  5. XYLOCAINE [Concomitant]
  6. PRIMAXIN [Concomitant]
  7. SULPERAZON /00883901/ (CEFOPERAZONE SODIUM, SULBACTAM SODIUM) [Concomitant]

REACTIONS (1)
  - LIVER DISORDER [None]
